FAERS Safety Report 10685691 (Version 1)
Quarter: 2014Q4

REPORT INFORMATION
  Report Type: Spontaneous
  Country: US (occurrence: None)
  Receive Date: 20141230
  Receipt Date: 20141230
  Transmission Date: 20150529
  Serious: Yes (Other)
  Sender: FDA-Public Use
  Company Number: None

PATIENT
  Age: 15 Year
  Sex: Male

DRUGS (1)
  1. CLONIDINE. [Suspect]
     Active Substance: CLONIDINE
     Indication: HYPERTENSION
     Dates: start: 20141222, end: 20141226

REACTIONS (2)
  - Incorrect dose administered by device [None]
  - Wrong technique in drug usage process [None]

NARRATIVE: CASE EVENT DATE: 20141222
